FAERS Safety Report 7413403-8 (Version None)
Quarter: 2011Q2

REPORT INFORMATION
  Report Type: 
  Country: None (occurrence: None)
  Receive Date: 20110413
  Receipt Date: 20110404
  Transmission Date: 20111010
  Serious: Yes (Other)
  Sender: FDA-Public Use
  Company Number: CA-NAPPMUNDI-CAN-2011-0001828

PATIENT
  Sex: Female

DRUGS (10)
  1. BUTRANS TRANSDERMAL PATCH - 10 MCG/HR [Suspect]
     Indication: TRIGEMINAL NEURALGIA
     Dosage: 10 MCG, Q1H
     Route: 062
     Dates: start: 20100928
  2. GABAPENTIN [Concomitant]
     Indication: TRIGEMINAL NEURALGIA
     Dosage: 900 MG, BID
     Route: 048
     Dates: start: 20100928
  3. GRAVOL TAB [Concomitant]
     Indication: NAUSEA
     Dosage: UNK, PRN
     Route: 048
     Dates: start: 20100928
  4. TRIDURAL [Concomitant]
     Indication: PAIN
     Dosage: 300 MG, DAILY
  5. RISPERDAL [Concomitant]
     Indication: TRIGEMINAL NEURALGIA
     Dosage: 1 MG, NOCTE
     Route: 048
     Dates: start: 20101118
  6. ZOPICLONE [Concomitant]
     Indication: PRODUCT USED FOR UNKNOWN INDICATION
     Dosage: 10 MG, QHS
     Route: 048
     Dates: start: 20101028
  7. TYLENOL EXTRA STRENGTH [Concomitant]
     Indication: PRODUCT USED FOR UNKNOWN INDICATION
     Dosage: UNK, PRN
     Route: 048
     Dates: start: 20110121
  8. MAXERAN [Concomitant]
     Indication: NAUSEA
     Dosage: 10 MG, AC
     Route: 048
  9. CYMBALTA [Concomitant]
     Indication: DEPRESSION
     Dosage: 60 MG, DAILY
     Route: 048
     Dates: start: 20100928
  10. BUTRANS TRANSDERMAL PATCH - 20 MCG/HR [Suspect]
     Indication: TRIGEMINAL NEURALGIA
     Dosage: 20 MCG, Q1H
     Route: 062
     Dates: start: 20101015, end: 20110217

REACTIONS (6)
  - SWELLING FACE [None]
  - URTICARIA [None]
  - APPLICATION SITE ODOUR [None]
  - APPLICATION SITE PRURITUS [None]
  - APPLICATION SITE EXFOLIATION [None]
  - NAUSEA [None]
